FAERS Safety Report 8925716 (Version 1)
Quarter: 2012Q4

REPORT INFORMATION
  Report Type: 
  Country: IL (occurrence: IL)
  Receive Date: 20121126
  Receipt Date: 20121126
  Transmission Date: 20130627
  Serious: Yes (Death)
  Sender: FDA-Public Use
  Company Number: IL-B.I. PHARMACEUTICALS,INC./RIDGEFIELD-2012-AP-01013RI

PATIENT
  Age: 76 Year
  Sex: Female

DRUGS (3)
  1. PRADAXA [Suspect]
     Route: 048
  2. COUMADIN [Concomitant]
  3. ASPIRIN [Concomitant]

REACTIONS (1)
  - Haematemesis [Fatal]
